FAERS Safety Report 5572478-1 (Version None)
Quarter: 2007Q4

REPORT INFORMATION
  Report Type: 
  Country: None (occurrence: None)
  Receive Date: 20071219
  Receipt Date: 20071210
  Transmission Date: 20080405
  Serious: Yes (Hospitalization, Other)
  Sender: FDA-Public Use
  Company Number: DSJ-2007-09204

PATIENT
  Age: 81 Year
  Sex: Female
  Weight: 56 kg

DRUGS (8)
  1. OLMESARTAN MEDOXOMIL [Suspect]
     Indication: HYPERTENSION
     Dosage: 20 MG (20 MG, 1 IN 1 D), PER ORAL
     Route: 048
     Dates: end: 20071102
  2. WARFARIN (WARFARIN) (TABLET) (WARFARIN) [Concomitant]
  3. BENET (RISEDRONATE SODIUM) (TABLET) (RISEDRONATE SODIUM) [Concomitant]
  4. ERMODELLIN (ALFACALIDOL) (CAPSULE) (ALFACALCIDOL) [Concomitant]
  5. EPADEL (ETHYL ICOSAPENTATE) (CAPSULE) (ETHYL ICOSAPENTAE) [Concomitant]
  6. MAGMITT (MAGNESIUM OXIDE) (TABLET) (MAGNESIUM OXIDE) [Concomitant]
  7. LOXONIN (LOXOPROFEN SODIUM) (TABLET) (LOXOPROFEN SODIUM) [Concomitant]
  8. MUCOSTA (REBAMIPIDE) (TABLET) (REBAMIPIDE) [Concomitant]

REACTIONS (5)
  - CEREBRAL INFARCTION [None]
  - DIZZINESS [None]
  - DYSARTHRIA [None]
  - HYPOGLYCAEMIA [None]
  - MUSCULAR WEAKNESS [None]
